FAERS Safety Report 15159368 (Version 1)
Quarter: 2018Q3

REPORT INFORMATION
  Report Type: Spontaneous
  Country: FR (occurrence: FR)
  Receive Date: 20180718
  Receipt Date: 20180718
  Transmission Date: 20181010
  Serious: Yes (Hospitalization)
  Sender: FDA-Public Use
  Company Number: FR-PFIZER INC-2018280852

PATIENT
  Age: 75 Year
  Sex: Female

DRUGS (5)
  1. IMETH /00113801/ [Concomitant]
     Active Substance: METHOTREXATE
     Dosage: 10 MG, WEEKLY
  2. XELJANZ [Suspect]
     Active Substance: TOFACITINIB CITRATE
     Indication: RHEUMATOID ARTHRITIS
     Dosage: 5 MG, 2X/DAY
     Route: 048
     Dates: start: 20180516
  3. CORTANCYL [Concomitant]
     Active Substance: PREDNISONE
     Dosage: 10 MG, DAILY
  4. CORTANCYL [Concomitant]
     Active Substance: PREDNISONE
     Dosage: 7.5 MG, DAILY
  5. IMETH /00113801/ [Concomitant]
     Active Substance: METHOTREXATE
     Dosage: 15 MG, WEEKLY

REACTIONS (2)
  - Diarrhoea infectious [Unknown]
  - Urosepsis [Unknown]

NARRATIVE: CASE EVENT DATE: 20180605
